FAERS Safety Report 8725415 (Version 3)
Quarter: 2013Q1

REPORT INFORMATION
  Report Type: Other
  Country: UG (occurrence: UG)
  Receive Date: 20120815
  Receipt Date: 20130215
  Transmission Date: 20140127
  Serious: Yes (Hospitalization)
  Sender: FDA-Public Use
  Company Number: UG-BRISTOL-MYERS SQUIBB COMPANY-16849192

PATIENT
  Age: 12 Year
  Sex: Male
  Weight: 35 kg

DRUGS (1)
  1. STOCRIN TABS 600 MG [Suspect]
     Route: 048

REACTIONS (12)
  - Accidental overdose [Recovered/Resolved]
  - Throat irritation [Recovered/Resolved]
  - Vision blurred [Recovered/Resolved]
  - Tremor [Recovered/Resolved]
  - Abasia [Recovered/Resolved]
  - Muscular weakness [Recovered/Resolved]
  - Screaming [Recovered/Resolved]
  - Toxicity to various agents [Recovered/Resolved]
  - Sleep disorder [Recovered/Resolved]
  - Hallucination [Recovered/Resolved]
  - Nightmare [Recovered/Resolved]
  - Product name confusion [Unknown]
